FAERS Safety Report 7565632-0 (Version None)
Quarter: 2011Q2

REPORT INFORMATION
  Report Type: 
  Country: None (occurrence: None)
  Receive Date: 20110616
  Receipt Date: 20110615
  Transmission Date: 20111010
  Serious: Yes (Other)
  Sender: FDA-Public Use
  Company Number: 1022556-2011-00015

PATIENT
  Sex: Male

DRUGS (1)
  1. ICY HOT POWDER GEL 1.75 OZ [Suspect]
     Indication: MYALGIA
     Dosage: TOPICAL; ONCE
     Route: 061

REACTIONS (2)
  - CHEMICAL INJURY [None]
  - SKIN EXFOLIATION [None]
